FAERS Safety Report 9378221 (Version 1)
Quarter: 2013Q3

REPORT INFORMATION
  Report Type: Spontaneous
  Country: US (occurrence: US)
  Receive Date: 20130701
  Receipt Date: 20130701
  Transmission Date: 20140515
  Serious: No
  Sender: FDA-Public Use
  Company Number: US-US-EMD SERONO, INC.-7125956

PATIENT
  Age: 41 Year
  Sex: Female
  Weight: 45 kg

DRUGS (5)
  1. REBIF [Suspect]
     Indication: MULTIPLE SCLEROSIS
     Route: 058
     Dates: start: 20120216, end: 201206
  2. TRILEPTAL [Concomitant]
     Indication: TRIGEMINAL NEURALGIA
     Route: 048
     Dates: start: 200406, end: 201303
  3. VITAMIN D3 [Concomitant]
     Indication: VITAMIN D DEFICIENCY
     Route: 048
     Dates: start: 201102
  4. BACLOFEN [Concomitant]
     Indication: MUSCLE SPASTICITY
     Route: 048
     Dates: start: 201102
  5. VALIUM                             /00017001/ [Concomitant]
     Indication: DIZZINESS
     Route: 048
     Dates: start: 201108

REACTIONS (26)
  - Dyspnoea [Recovered/Resolved]
  - Sensation of heaviness [Not Recovered/Not Resolved]
  - Skin discolouration [Not Recovered/Not Resolved]
  - Dizziness [Not Recovered/Not Resolved]
  - Dysphagia [Not Recovered/Not Resolved]
  - Ageusia [Not Recovered/Not Resolved]
  - Nausea [Recovered/Resolved]
  - Petechiae [Recovered/Resolved]
  - Injection site scab [Recovered/Resolved]
  - Blood creatinine increased [Unknown]
  - Blood chloride increased [Unknown]
  - Protein total decreased [Unknown]
  - Globulins decreased [Unknown]
  - Red cell distribution width increased [Unknown]
  - Abdominal pain [Recovered/Resolved]
  - Multiple sclerosis [Unknown]
  - Haematocrit decreased [Unknown]
  - Haemoglobin decreased [Unknown]
  - Platelet count decreased [Not Recovered/Not Resolved]
  - White blood cell count decreased [Unknown]
  - Aspartate aminotransferase increased [Unknown]
  - Alanine aminotransferase increased [Unknown]
  - Injection site pain [Recovered/Resolved]
  - Headache [Unknown]
  - Depression [Not Recovered/Not Resolved]
  - Injection site erythema [Not Recovered/Not Resolved]
